FAERS Safety Report 7183107-8 (Version None)
Quarter: 2010Q4

REPORT INFORMATION
  Report Type: 
  Country: None (occurrence: None)
  Receive Date: 20101222
  Receipt Date: 20101215
  Transmission Date: 20110411
  Serious: Yes (Hospitalization)
  Sender: FDA-Public Use
  Company Number: IT-JNJFOC-20101205997

PATIENT
  Sex: Female

DRUGS (6)
  1. RISPERDAL [Suspect]
     Indication: DEPRESSION
     Route: 048
  2. NORTRIPTYLINE [Concomitant]
     Indication: ILL-DEFINED DISORDER
     Route: 048
  3. MIRTAZAPINA [Concomitant]
     Indication: ILL-DEFINED DISORDER
     Route: 048
  4. LORAZEPAM [Concomitant]
     Indication: ILL-DEFINED DISORDER
  5. EUTIROX [Concomitant]
     Indication: ILL-DEFINED DISORDER
     Route: 048
  6. SPIRIDAZIDE [Concomitant]
     Indication: ILL-DEFINED DISORDER
     Route: 048

REACTIONS (3)
  - DYSKINESIA [None]
  - STEREOTYPY [None]
  - TORTICOLLIS [None]
